FAERS Safety Report 10171367 (Version 4)
Quarter: 2014Q3

REPORT INFORMATION
  Report Type: Report from Study
  Country: CA (occurrence: CA)
  Receive Date: 20140514
  Receipt Date: 20140806
  Transmission Date: 20150326
  Serious: Yes (Disabling, Other)
  Sender: FDA-Public Use
  Company Number: PHHY2014CA057693

PATIENT
  Age: 52 Year
  Sex: Female

DRUGS (1)
  1. SANDOSTATIN LAR DEPOT [Suspect]
     Active Substance: OCTREOTIDE ACETATE
     Indication: NEUROENDOCRINE CARCINOMA
     Dosage: 30 MG, ONCE A MONTH
     Route: 030
     Dates: start: 20140211

REACTIONS (15)
  - Depressed level of consciousness [Unknown]
  - Vision blurred [Unknown]
  - Deep vein thrombosis [Unknown]
  - Dysphagia [Unknown]
  - Blood pressure systolic increased [Unknown]
  - Stupor [Unknown]
  - Hypersomnia [Unknown]
  - Eating disorder [Unknown]
  - Pulse abnormal [Unknown]
  - Terminal state [Unknown]
  - Respiratory rate decreased [Unknown]
  - Vital functions abnormal [Unknown]
  - Pallor [Unknown]
  - Catheter site swelling [Unknown]
  - Pain [Unknown]

NARRATIVE: CASE EVENT DATE: 20140504
